FAERS Safety Report 8825658 (Version 1)
Quarter: 2012Q4

REPORT INFORMATION
  Report Type: 
  Country: US (occurrence: US)
  Receive Date: 20121004
  Receipt Date: 20121004
  Transmission Date: 20130627
  Serious: No
  Sender: FDA-Public Use
  Company Number: US-VERTEX PHARMACEUTICAL INC.-2012-021261

PATIENT
  Age: 37 Year
  Sex: Male
  Weight: 116 kg

DRUGS (5)
  1. VX-950 [Suspect]
     Indication: HEPATITIS C
     Dosage: 750 mg, tid
     Route: 048
  2. RIBAVIRIN [Concomitant]
     Indication: HEPATITIS C
  3. PEG-INTRON KIT [Concomitant]
     Indication: HEPATITIS C
     Dosage: 150 ?g, UNK
  4. BENADRYL                           /00000402/ [Concomitant]
     Dosage: 25 mg, qd
  5. LITHIUM CARBONATE [Concomitant]
     Dosage: 450 mg, UNK

REACTIONS (1)
  - Insomnia [Unknown]
